FAERS Safety Report 7067407-8 (Version None)
Quarter: 2010Q4

REPORT INFORMATION
  Report Type: 
  Country: None (occurrence: None)
  Receive Date: 20101026
  Receipt Date: 20101026
  Transmission Date: 20110411
  Serious: Yes (Other)
  Sender: FDA-Public Use
  Company Number: None

PATIENT
  Age: 29 Year
  Sex: Female
  Weight: 65.7716 kg

DRUGS (2)
  1. PAXIL [Suspect]
     Indication: ANXIETY
     Dosage: 20MG ONCE DAY PO
     Route: 048
     Dates: start: 20081001, end: 20101018
  2. PAXIL [Suspect]
     Indication: DEPRESSION
     Dosage: 20MG ONCE DAY PO
     Route: 048
     Dates: start: 20081001, end: 20101018

REACTIONS (3)
  - DIZZINESS [None]
  - IMPAIRED WORK ABILITY [None]
  - UNEVALUABLE EVENT [None]
